FAERS Safety Report 13793674 (Version 9)
Quarter: 2021Q1

REPORT INFORMATION
  Report Type: Spontaneous
  Country: CA (occurrence: CA)
  Receive Date: 20170726
  Receipt Date: 20210223
  Transmission Date: 20210419
  Serious: Yes (Other)
  Sender: FDA-Public Use
  Company Number: CA-PFIZER INC-2017028568

PATIENT
  Age: 60 Year
  Sex: Male

DRUGS (17)
  1. XELJANZ [Suspect]
     Active Substance: TOFACITINIB CITRATE
     Dosage: 5 MG, 2X/DAY
     Route: 048
     Dates: start: 20171002, end: 2018
  2. PREDNISONE. [Concomitant]
     Active Substance: PREDNISONE
     Dosage: 2 MG, DAILY
     Route: 048
  3. PLAQUENIL [Concomitant]
     Active Substance: HYDROXYCHLOROQUINE SULFATE
     Dosage: 200 MG, 2X/DAY
     Dates: start: 200711
  4. PREDNISONE. [Concomitant]
     Active Substance: PREDNISONE
     Dosage: 10 MG, DAILY
     Route: 048
  5. PREDNISONE. [Concomitant]
     Active Substance: PREDNISONE
     Dosage: 3 MG, DAILY
     Route: 065
     Dates: start: 20200826
  6. PLAQUENIL [Concomitant]
     Active Substance: HYDROXYCHLOROQUINE SULFATE
     Indication: RHEUMATOID ARTHRITIS
     Dosage: UNK
  7. XELJANZ [Suspect]
     Active Substance: TOFACITINIB CITRATE
     Dosage: 5 MG, 2X/DAY
     Route: 048
     Dates: start: 20180217, end: 201904
  8. PREDNISONE. [Concomitant]
     Active Substance: PREDNISONE
     Dosage: 2.5 MG, 1X/DAY, THEN THE NEXT DAY 5 MG OD
     Route: 048
  9. XELJANZ [Suspect]
     Active Substance: TOFACITINIB CITRATE
     Dosage: 5 MG, 2X/DAY
     Route: 048
     Dates: start: 20210110
  10. PREDNISONE. [Concomitant]
     Active Substance: PREDNISONE
     Dosage: 2 MG, DAILY
     Route: 065
     Dates: start: 20160826
  11. PREDNISONE. [Concomitant]
     Active Substance: PREDNISONE
     Dosage: 4 MG, DAILY
     Route: 048
  12. PREDNISONE. [Concomitant]
     Active Substance: PREDNISONE
     Dosage: 5 MG, 1X/DAY, ONE DAY THEN THE NEXT DAY 2.5MG 1X/DAY (OD)
     Route: 048
  13. ALEVE [Concomitant]
     Active Substance: NAPROXEN SODIUM
     Dosage: UNK, AS NEEDED, 1?2 TAB
     Route: 065
  14. PREDNISONE. [Concomitant]
     Active Substance: PREDNISONE
     Dosage: WEAN BY 1 MG EVERY 3 WEEKS
     Route: 048
  15. XELJANZ [Suspect]
     Active Substance: TOFACITINIB CITRATE
     Indication: RHEUMATOID ARTHRITIS
     Dosage: 5 MG, 2X/DAY
     Route: 048
     Dates: start: 20160416, end: 201704
  16. CORTISONE [Concomitant]
     Active Substance: CORTISONE
     Dosage: UNK
  17. PREDNISONE. [Concomitant]
     Active Substance: PREDNISONE
     Dosage: 1 MG, DAILY
     Route: 048

REACTIONS (11)
  - Cough [Recovered/Resolved]
  - Kidney infection [Recovered/Resolved]
  - Stress [Recovered/Resolved]
  - Blood pressure systolic increased [Unknown]
  - Prostatic disorder [Recovered/Resolved]
  - Dyspepsia [Recovered/Resolved]
  - Nasal congestion [Recovered/Resolved]
  - Dysuria [Recovered/Resolved]
  - Headache [Unknown]
  - Haematochezia [Recovered/Resolved]
  - Nasopharyngitis [Recovered/Resolved]

NARRATIVE: CASE EVENT DATE: 20170117
